FAERS Safety Report 17079993 (Version 1)
Quarter: 2019Q4

REPORT INFORMATION
  Report Type: Spontaneous
  Country: IT (occurrence: IT)
  Receive Date: 20191127
  Receipt Date: 20191127
  Transmission Date: 20200122
  Serious: Yes (Death)
  Sender: FDA-Public Use
  Company Number: IT-AMGEN-ITASP2019195121

PATIENT

DRUGS (1)
  1. DARBEPOETIN ALFA [Suspect]
     Active Substance: DARBEPOETIN ALFA
     Indication: ANAEMIA
     Dosage: UNK
     Route: 065

REACTIONS (3)
  - Drug resistance [Unknown]
  - Cardiovascular disorder [Fatal]
  - Therapeutic product effect incomplete [Unknown]
